FAERS Safety Report 5053836-0 (Version None)
Quarter: 2006Q3

REPORT INFORMATION
  Report Type: 
  Country: None (occurrence: None)
  Receive Date: 20060718
  Receipt Date: 20060711
  Transmission Date: 20061208
  Serious: Yes (Hospitalization)
  Sender: FDA-Public Use
  Company Number: FR-GLAXOSMITHKLINE-B0430564A

PATIENT
  Age: 60 Year
  Sex: Male

DRUGS (1)
  1. ZINNAT 250 MG [Suspect]
     Route: 048
     Dates: start: 20051222, end: 20051225

REACTIONS (5)
  - EYELID OEDEMA [None]
  - GENERALISED ERYTHEMA [None]
  - PRURITUS [None]
  - PYREXIA [None]
  - URTICARIA [None]
